FAERS Safety Report 5971854-2 (Version None)
Quarter: 2008Q4

REPORT INFORMATION
  Report Type: 
  Country: None (occurrence: None)
  Receive Date: 20081125
  Receipt Date: 20081117
  Transmission Date: 20090506
  Serious: Yes (Other)
  Sender: FDA-Public Use
  Company Number: 036901

PATIENT
  Age: 40 Year
  Sex: Female

DRUGS (4)
  1. RISPERIDONE [Suspect]
  2. NAPROXEN [Suspect]
  3. FLUOXETINE [Suspect]
  4. DULOXETINE [Suspect]

REACTIONS (2)
  - MULTIPLE DRUG OVERDOSE INTENTIONAL [None]
  - SUICIDE ATTEMPT [None]
